FAERS Safety Report 17856080 (Version 2)
Quarter: 2020Q2

REPORT INFORMATION
  Report Type: Spontaneous
  Country: BR (occurrence: BR)
  Receive Date: 20200603
  Receipt Date: 20200610
  Transmission Date: 20200714
  Serious: Yes (Other)
  Sender: FDA-Public Use
  Company Number: BR-UCBSA-2020022093

PATIENT
  Age: 82 Year
  Sex: Male
  Weight: 49 kg

DRUGS (5)
  1. ALPRAZOLAM. [Concomitant]
     Active Substance: ALPRAZOLAM
     Indication: INSOMNIA
     Dosage: 1 MILLIGRAM, ONCE DAILY (QD)
     Route: 048
     Dates: start: 2019
  2. ACETYLSALICYLIC ACID [Concomitant]
     Active Substance: ASPIRIN
     Indication: ANTICOAGULANT THERAPY
     Dosage: 200 MILLIGRAM, ONCE DAILY (QD)
     Route: 048
     Dates: start: 202004
  3. NEUPRO [Suspect]
     Active Substance: ROTIGOTINE
     Indication: PARKINSON^S DISEASE
     Dosage: 4 MILLIGRAM, ONCE DAILY (QD)
     Route: 062
     Dates: start: 201809, end: 20200524
  4. NEUPRO [Suspect]
     Active Substance: ROTIGOTINE
     Dosage: 4 MG ONE AND A HALF PATCH A DAY
     Route: 062
     Dates: start: 20200525
  5. PROLOPA [Concomitant]
     Active Substance: BENSERAZIDE\LEVODOPA
     Indication: PARKINSON^S DISEASE

REACTIONS (4)
  - Emphysema [Unknown]
  - Tremor [Recovering/Resolving]
  - Wrong technique in product usage process [Unknown]
  - Dysphagia [Recovering/Resolving]

NARRATIVE: CASE EVENT DATE: 2019
